FAERS Safety Report 11196161 (Version 1)
Quarter: 2015Q2

REPORT INFORMATION
  Report Type: Spontaneous
  Country: US (occurrence: US)
  Receive Date: 20150617
  Receipt Date: 20150617
  Transmission Date: 20150821
  Serious: Yes (Other)
  Sender: FDA-Public Use
  Company Number: US-ABBVIE-15P-163-1408809-00

PATIENT
  Sex: Female

DRUGS (2)
  1. SYNTHROID [Suspect]
     Active Substance: LEVOTHYROXINE SODIUM
     Indication: PRODUCT USED FOR UNKNOWN INDICATION
     Dosage: ALTERNATES BETWEEN 137 AND 150
     Route: 048
  2. SYNTHROID [Suspect]
     Active Substance: LEVOTHYROXINE SODIUM
     Indication: PRODUCT USED FOR UNKNOWN INDICATION
     Dosage: ALTERNATES BETWEEN 137 AND 150
     Route: 048

REACTIONS (19)
  - Cyst rupture [Unknown]
  - Bladder operation [Unknown]
  - Costochondritis [Not Recovered/Not Resolved]
  - Drug effect incomplete [Recovered/Resolved]
  - Cerebral cyst [Unknown]
  - Ovarian cyst [Unknown]
  - Knee arthroplasty [Unknown]
  - Osteomyelitis [Unknown]
  - Uterine neoplasm [Unknown]
  - Breast mass [Unknown]
  - Foreign body [Unknown]
  - Tendon rupture [Unknown]
  - Thyroid cancer [Unknown]
  - Unevaluable event [Recovered/Resolved]
  - Surgery [Unknown]
  - Rotator cuff repair [Unknown]
  - Wrist fracture [Unknown]
  - Tonsillectomy [Unknown]
  - Uterine cancer [Unknown]
